FAERS Safety Report 9542005 (Version 2)
Quarter: 2013Q4

REPORT INFORMATION
  Report Type: Spontaneous
  Country: US (occurrence: US)
  Receive Date: 20130923
  Receipt Date: 20131203
  Transmission Date: 20140711
  Serious: Yes (Hospitalization)
  Sender: FDA-Public Use
  Company Number: US-BAYER-2013-109341

PATIENT
  Age: 51 Year
  Sex: Female

DRUGS (4)
  1. YASMIN [Suspect]
     Indication: DYSFUNCTIONAL UTERINE BLEEDING
     Dosage: UNK
     Dates: start: 2007, end: 201101
  2. ZOLOFT [Concomitant]
  3. IRON [Concomitant]
  4. VICODIN [Concomitant]

REACTIONS (3)
  - Pulmonary embolism [None]
  - Pulmonary embolism [None]
  - Deep vein thrombosis [None]
